FAERS Safety Report 9514131 (Version 1)
Quarter: 2013Q3

REPORT INFORMATION
  Report Type: Spontaneous
  Country: NL (occurrence: NL)
  Receive Date: 20130910
  Receipt Date: 20130910
  Transmission Date: 20140515
  Serious: Yes (Other)
  Sender: FDA-Public Use
  Company Number: NL-B.I. PHARMACEUTICALS,INC./RIDGEFIELD-2013-NL-00569NL

PATIENT
  Sex: 0

DRUGS (1)
  1. PERSANTIN RETARD 150 [Suspect]

REACTIONS (1)
  - Transient ischaemic attack [Unknown]
